FAERS Safety Report 22393472 (Version 2)
Quarter: 2023Q2

REPORT INFORMATION
  Report Type: Spontaneous
  Country: BE (occurrence: None)
  Receive Date: 20230601
  Receipt Date: 20230612
  Transmission Date: 20230721
  Serious: Yes (Death, Life-Threatening, Other)
  Sender: FDA-Public Use
  Company Number: BE-ROCHE-3357585

PATIENT
  Sex: Female

DRUGS (1)
  1. OCREVUS [Suspect]
     Active Substance: OCRELIZUMAB
     Indication: Product used for unknown indication
     Route: 065
     Dates: start: 20191001

REACTIONS (11)
  - Neoplasm skin [Unknown]
  - Metastases to liver [Unknown]
  - Metastases to adrenals [Unknown]
  - Metastases to breast [Unknown]
  - Metastases to skin [Unknown]
  - Metastases to muscle [Unknown]
  - Metastases to bone [Unknown]
  - Malignant melanoma [Unknown]
  - Disease progression [Unknown]
  - Adenocarcinoma [Unknown]
  - Death [Fatal]
